FAERS Safety Report 24426413 (Version 1)
Quarter: 2024Q4

REPORT INFORMATION
  Report Type: Spontaneous
  Country: MY (occurrence: MY)
  Receive Date: 20241011
  Receipt Date: 20241011
  Transmission Date: 20250115
  Serious: Yes (Hospitalization, Disabling, Other)
  Sender: MICRO LABS
  Company Number: MY-862174955-ML2024-05306

PATIENT
  Age: 68 Year
  Sex: Male

DRUGS (1)
  1. DICLOFENAC [Suspect]
     Active Substance: DICLOFENAC
     Indication: Renal colic
     Route: 030

REACTIONS (3)
  - Cyanosis [Unknown]
  - Cutaneous vasculitis [Unknown]
  - Gangrene [Unknown]
